FAERS Safety Report 7712623-2 (Version None)
Quarter: 2011Q3

REPORT INFORMATION
  Report Type: 
  Country: None (occurrence: None)
  Receive Date: 20110826
  Receipt Date: 20110817
  Transmission Date: 20111222
  Serious: Yes (Hospitalization)
  Sender: FDA-Public Use
  Company Number: FR-JNJFOC-20110808243

PATIENT
  Age: 64 Year
  Sex: Female

DRUGS (11)
  1. RILMENIDINE [Concomitant]
     Route: 065
  2. LOSARTAN POTASSIUM AND HYDROCHLOROTHIAZIDE [Concomitant]
     Route: 065
  3. RIFADIN [Suspect]
     Indication: STAPHYLOCOCCAL INFECTION
     Route: 048
     Dates: start: 20110627, end: 20110701
  4. LOSARTAN POTASSIUM AND HYDROCHLOROTHIAZIDE [Concomitant]
     Route: 065
  5. DIOSMIN [Concomitant]
     Route: 065
  6. FUSIDIC ACID [Suspect]
     Indication: STAPHYLOCOCCAL INFECTION
     Route: 048
     Dates: start: 20110614, end: 20110627
  7. METFFORMIN HYDROCHLORIDE [Concomitant]
     Route: 065
     Dates: end: 20110625
  8. POLYETHYLENE GLYCOL [Concomitant]
     Route: 065
  9. PARACETAMOL W/TRAMADOL HYDROCHLORIDE [Concomitant]
     Route: 065
  10. VERAPAMIL HCL [Concomitant]
     Route: 065
  11. LEVOFLOXACIN [Suspect]
     Indication: STAPHYLOCOCCAL INFECTION
     Route: 048
     Dates: start: 20110614, end: 20110701

REACTIONS (3)
  - RENAL FAILURE [None]
  - CHOLESTASIS [None]
  - JAUNDICE [None]
